FAERS Safety Report 18355479 (Version 1)
Quarter: 2020Q4

REPORT INFORMATION
  Report Type: Spontaneous
  Country: US (occurrence: US)
  Receive Date: 20201006
  Receipt Date: 20201006
  Transmission Date: 20210114
  Serious: No
  Sender: FDA-Public Use
  Company Number: None

PATIENT
  Age: 39 Year
  Sex: Female

DRUGS (1)
  1. HUMIRA [Suspect]
     Active Substance: ADALIMUMAB
     Indication: CROHN^S DISEASE
     Route: 058
     Dates: start: 201908

REACTIONS (6)
  - Crohn^s disease [None]
  - Disease prodromal stage [None]
  - Injection site extravasation [None]
  - Product complaint [None]
  - Incorrect dose administered by device [None]
  - Incorrect dose administered [None]

NARRATIVE: CASE EVENT DATE: 20201001
